FAERS Safety Report 21963421 (Version 1)
Quarter: 2023Q1

REPORT INFORMATION
  Report Type: Report from Study
  Country: US (occurrence: US)
  Receive Date: 20230207
  Receipt Date: 20230207
  Transmission Date: 20230417
  Serious: No
  Sender: FDA-Public Use
  Company Number: US-Ipsen Biopharmaceuticals, Inc.-2022-29353

PATIENT
  Age: 73 Year
  Sex: Female

DRUGS (1)
  1. SOMATULINE DEPOT [Suspect]
     Active Substance: LANREOTIDE ACETATE
     Indication: Acromegaly
     Route: 058

REACTIONS (6)
  - Fall [Recovering/Resolving]
  - Lip injury [Recovering/Resolving]
  - Teeth brittle [Unknown]
  - Surgery [Unknown]
  - Thyroid disorder [Recovered/Resolved]
  - Off label use [Unknown]
